FAERS Safety Report 6220276-8 (Version None)
Quarter: 2009Q2

REPORT INFORMATION
  Report Type: 
  Country: None (occurrence: None)
  Receive Date: 20090605
  Receipt Date: 20090526
  Transmission Date: 20091009
  Serious: Yes (Life-Threatening, Hospitalization)
  Sender: FDA-Public Use
  Company Number: 230012M09ESP

PATIENT
  Age: 53 Year
  Sex: Female

DRUGS (1)
  1. REBIF [Suspect]
     Indication: MULTIPLE SCLEROSIS
     Dosage: 44, SUBCUTANEOUS
     Route: 058
     Dates: start: 20090119, end: 20090404

REACTIONS (37)
  - ASCITES [None]
  - ASTHENIA [None]
  - ATELECTASIS [None]
  - CANDIDIASIS [None]
  - CEREBRAL ISCHAEMIA [None]
  - COAGULOPATHY [None]
  - CONVULSION [None]
  - CULTURE POSITIVE [None]
  - CULTURE URINE POSITIVE [None]
  - DEPRESSED LEVEL OF CONSCIOUSNESS [None]
  - DISSEMINATED INTRAVASCULAR COAGULATION [None]
  - EMBOLISM [None]
  - ENTEROBACTER INFECTION [None]
  - HAEMODIALYSIS [None]
  - HAEMOTHORAX [None]
  - HALLUCINATION [None]
  - HYDRONEPHROSIS [None]
  - HYPOPHONESIS [None]
  - ISCHAEMIC HEPATITIS [None]
  - LEUKAEMOID REACTION [None]
  - MUSCULAR WEAKNESS [None]
  - NECROSIS ISCHAEMIC [None]
  - NEPHROLITHIASIS [None]
  - PARESIS [None]
  - PETECHIAE [None]
  - PLEURAL EFFUSION [None]
  - PRODUCTIVE COUGH [None]
  - PURULENCE [None]
  - PYELONEPHRITIS ACUTE [None]
  - RENAL FAILURE ACUTE [None]
  - SEPTIC SHOCK [None]
  - SKIN HAEMORRHAGE [None]
  - SKIN LESION [None]
  - THROMBOCYTOPENIA [None]
  - TONIC CLONIC MOVEMENTS [None]
  - URINARY TRACT INFECTION [None]
  - WHEEZING [None]
